FAERS Safety Report 6182772-1 (Version None)
Quarter: 2009Q2

REPORT INFORMATION
  Report Type: 
  Country: None (occurrence: None)
  Receive Date: 20090507
  Receipt Date: 20090429
  Transmission Date: 20091009
  Serious: Yes (Hospitalization, Other)
  Sender: FDA-Public Use
  Company Number: DE-AMGEN-UK338079

PATIENT
  Sex: Female
  Weight: 63 kg

DRUGS (1)
  1. VECTIBIX [Suspect]
     Indication: COLORECTAL CANCER
     Route: 042
     Dates: start: 20080807, end: 20080911

REACTIONS (4)
  - NASAL DISORDER [None]
  - RASH [None]
  - RASH PAPULAR [None]
  - RASH PUSTULAR [None]
